FAERS Safety Report 5019449-1 (Version None)
Quarter: 2006Q2

REPORT INFORMATION
  Report Type: 
  Country: None (occurrence: None)
  Receive Date: 20060530
  Receipt Date: 20060515
  Transmission Date: 20061013
  Serious: Yes (Hospitalization)
  Sender: FDA-Public Use
  Company Number: CIP06000708

PATIENT
  Age: 59 Year
  Sex: Male
  Weight: 102.9 kg

DRUGS (8)
  1. ASACOL [Suspect]
     Indication: COLITIS ULCERATIVE
     Dosage: OFF AND ON, ORAL
     Route: 048
     Dates: start: 19970101
  2. KEFLEX [Suspect]
  3. CANASA (MESALAZINE) [Concomitant]
  4. ENTOCORT (BUDESONIDE) [Concomitant]
  5. SKELAXIN [Concomitant]
  6. PRAVACHOL [Concomitant]
  7. CELEBREX [Concomitant]
  8. CRESTOR [Concomitant]

REACTIONS (26)
  - ABDOMINAL DISTENSION [None]
  - ABDOMINAL PAIN LOWER [None]
  - ABSCESS INTESTINAL [None]
  - BACK PAIN [None]
  - BLOOD CHOLESTEROL INCREASED [None]
  - BONE DISORDER [None]
  - BRONCHITIS [None]
  - BUNDLE BRANCH BLOCK RIGHT [None]
  - CHEST DISCOMFORT [None]
  - COLITIS ULCERATIVE [None]
  - CONDITION AGGRAVATED [None]
  - COUGH [None]
  - DIVERTICULUM INTESTINAL [None]
  - DRUG HYPERSENSITIVITY [None]
  - FLANK PAIN [None]
  - HAEMORRHOIDS [None]
  - INFLAMMATORY BOWEL DISEASE [None]
  - LIPOMA [None]
  - LYMPHADENOPATHY [None]
  - NOCTURIA [None]
  - PLEURAL EFFUSION [None]
  - RECTAL HAEMORRHAGE [None]
  - RECTAL POLYP [None]
  - RENAL CELL CARCINOMA STAGE II [None]
  - RENAL CYST [None]
  - VASCULAR CALCIFICATION [None]
